FAERS Safety Report 7901138-4 (Version None)
Quarter: 2011Q4

REPORT INFORMATION
  Report Type: 
  Country: None (occurrence: None)
  Receive Date: 20111108
  Receipt Date: 20111103
  Transmission Date: 20120403
  Serious: Yes (Other)
  Sender: FDA-Public Use
  Company Number: CA-PFIZER INC-2011238712

PATIENT
  Age: 77 Year
  Sex: Female

DRUGS (8)
  1. VITAMIN D [Concomitant]
     Indication: OSTEOPOROSIS
     Dosage: 1000 IU, PER DAY
     Route: 048
  2. GLUCOSAMINE SULFATE [Concomitant]
     Indication: OSTEOPOROSIS
     Dosage: 500/400 TWO TABS DAILY
     Route: 048
  3. CALCIUM CARBONATE [Concomitant]
     Indication: OSTEOPOROSIS
     Dosage: 2 TABS OF 600MG PER DAY
     Route: 048
  4. IRON [Concomitant]
     Indication: ANAEMIA
     Dosage: 2 TABS OF 300MG PER DAY
     Route: 048
  5. SYNTHROID [Concomitant]
     Indication: HYPOTHYROIDISM
     Dosage: 0.075 MG, 1X/DAY
     Route: 048
  6. XALATAN [Suspect]
     Indication: GLAUCOMA
     Dosage: 1 GTT IN EACH EYE AT BEDTIME
     Route: 047
     Dates: start: 20111004, end: 20111019
  7. COD-LIVER OIL [Concomitant]
     Indication: PROPHYLAXIS
     Dosage: 300 MG, 1X/DAY
     Route: 048
  8. MULTI-VITAMINS [Concomitant]
     Indication: SUPPLEMENTATION THERAPY
     Route: 048

REACTIONS (3)
  - EYE IRRITATION [None]
  - EYELID PTOSIS [None]
  - EYE PAIN [None]
